FAERS Safety Report 18713546 (Version 1)
Quarter: 2021Q1

REPORT INFORMATION
  Report Type: Spontaneous
  Country: BD (occurrence: BD)
  Receive Date: 20210107
  Receipt Date: 20210107
  Transmission Date: 20210419
  Serious: Yes (Death, Other)
  Sender: FDA-Public Use
  Company Number: BD-BAUSCH-BL-2020-038828

PATIENT
  Age: 7 Year
  Sex: Female

DRUGS (12)
  1. DEXAMETHASONE. [Suspect]
     Active Substance: DEXAMETHASONE
     Indication: PRIMITIVE NEUROECTODERMAL TUMOUR
     Dosage: 2 CYCLES
     Route: 065
  2. IRINOTECAN [Suspect]
     Active Substance: IRINOTECAN
     Route: 042
     Dates: start: 2020
  3. IRINOTECAN [Suspect]
     Active Substance: IRINOTECAN
     Indication: PRIMITIVE NEUROECTODERMAL TUMOUR
     Dosage: DAY 1?5; 2 CYCLES
     Route: 042
  4. IRINOTECAN [Suspect]
     Active Substance: IRINOTECAN
     Indication: RHABDOMYOSARCOMA
     Dosage: NEO ADJUVANT CHEMOTHERAPY
     Route: 042
     Dates: start: 2019
  5. VINCRYSTINE [Suspect]
     Active Substance: VINCRISTINE
     Indication: PRIMITIVE NEUROECTODERMAL TUMOUR
     Dosage: DAY 1, 2 CYCLES CHEMOTHERAPY
     Route: 042
  6. VINCRYSTINE [Suspect]
     Active Substance: VINCRISTINE
     Indication: RHABDOMYOSARCOMA
     Dosage: NEO ADJUVANT CHEMOTHERAPY
     Route: 042
     Dates: start: 2019
  7. DEXAMETHASONE. [Suspect]
     Active Substance: DEXAMETHASONE
     Indication: RHABDOMYOSARCOMA
     Dosage: NEO ADJUVANT CHEMOTHERAPY
     Route: 065
     Dates: start: 2019
  8. DEXAMETHASONE. [Suspect]
     Active Substance: DEXAMETHASONE
     Dosage: ADJUVANT CHEMOTHERAPY
     Route: 065
     Dates: start: 2019
  9. IRINOTECAN [Suspect]
     Active Substance: IRINOTECAN
     Dosage: ADJUVANT CHEMOTHERAPY
     Route: 042
     Dates: start: 2019
  10. VINCRYSTINE [Suspect]
     Active Substance: VINCRISTINE
     Dosage: ADJUVANT CHEMOTHERAPY
     Route: 042
     Dates: start: 2019
  11. DEXAMETHASONE. [Suspect]
     Active Substance: DEXAMETHASONE
     Route: 065
     Dates: start: 2020
  12. VINCRYSTINE [Suspect]
     Active Substance: VINCRISTINE
     Route: 042
     Dates: start: 2020

REACTIONS (2)
  - Therapy non-responder [Unknown]
  - Generalised oedema [Fatal]

NARRATIVE: CASE EVENT DATE: 2020
